FAERS Safety Report 6633509-0 (Version None)
Quarter: 2010Q1

REPORT INFORMATION
  Report Type: 
  Country: None (occurrence: None)
  Receive Date: 20100312
  Receipt Date: 20090911
  Transmission Date: 20100710
  Serious: No
  Sender: FDA-Public Use
  Company Number: US-ABBOTT-09P-163-0597354-00

PATIENT
  Sex: Female

DRUGS (2)
  1. ERYTHROMYCIN [Suspect]
     Indication: LYME DISEASE
     Dosage: UNKNOWN
     Dates: start: 19930101, end: 19930101
  2. DOXYCYCLINE [Suspect]
     Indication: LYME DISEASE
     Dosage: UNKNOWN
     Dates: start: 19930101, end: 19930101

REACTIONS (2)
  - ABDOMINAL DISCOMFORT [None]
  - DIARRHOEA [None]
